FAERS Safety Report 10689990 (Version 1)
Quarter: 2015Q1

REPORT INFORMATION
  Report Type: Spontaneous
  Country: FR (occurrence: FR)
  Receive Date: 20150105
  Receipt Date: 20150105
  Transmission Date: 20150720
  Serious: Yes (Hospitalization)
  Sender: FDA-Public Use
  Company Number: FR-AUROBINDO-AUR-APL-2014-13913

PATIENT
  Age: 47 Year
  Sex: Male

DRUGS (8)
  1. CLINDAMYCIN [Suspect]
     Active Substance: CLINDAMYCIN\CLINDAMYCIN PHOSPHATE
     Dosage: 900 UNK, UNK
     Route: 065
     Dates: start: 20141208
  2. CLINDAMYCIN [Suspect]
     Active Substance: CLINDAMYCIN\CLINDAMYCIN PHOSPHATE
     Indication: SACROILIITIS
     Dosage: 1800 MG, DAILY
     Route: 048
     Dates: start: 20141208, end: 20141209
  3. ARIXTRA [Concomitant]
     Active Substance: FONDAPARINUX SODIUM
     Indication: THROMBOSIS PROPHYLAXIS
     Dosage: UNK
     Route: 065
     Dates: start: 20141201
  4. LYRICA [Concomitant]
     Active Substance: PREGABALIN
     Indication: THROMBOSIS PROPHYLAXIS
     Dosage: UNK
     Route: 065
     Dates: start: 20141201
  5. GENTAMICINE [Concomitant]
     Active Substance: GENTAMICIN
     Indication: PRODUCT USED FOR UNKNOWN INDICATION
     Dosage: 240 MG, UNK
     Route: 065
     Dates: start: 20141203, end: 20141205
  6. ORBENINE [Suspect]
     Active Substance: CLOXACILLIN SODIUM
     Indication: SACROILIITIS
     Dosage: 2 G, EVERY FOUR HOUR
     Route: 065
     Dates: start: 20141203, end: 20141205
  7. ORBENINE [Suspect]
     Active Substance: CLOXACILLIN SODIUM
     Dosage: UNK
     Route: 042
     Dates: start: 20141206, end: 20141211
  8. LEVOFLOXACIN ARROW [Suspect]
     Active Substance: LEVOFLOXACIN
     Indication: SACROILIITIS
     Dosage: 500 MG, TWO TIMES A DAY
     Route: 048
     Dates: start: 20141206, end: 20141208

REACTIONS (6)
  - Transaminases increased [Recovering/Resolving]
  - Rash morbilliform [Recovering/Resolving]
  - Gamma-glutamyltransferase increased [Recovering/Resolving]
  - Blood alkaline phosphatase increased [Recovering/Resolving]
  - Cholestasis [Unknown]
  - Rash scarlatiniform [Recovering/Resolving]

NARRATIVE: CASE EVENT DATE: 20141209
